FAERS Safety Report 17764608 (Version 2)
Quarter: 2020Q2

REPORT INFORMATION
  Report Type: Spontaneous
  Country: US (occurrence: US)
  Receive Date: 20200511
  Receipt Date: 20200616
  Transmission Date: 20200714
  Serious: No
  Sender: FDA-Public Use
  Company Number: US-ASTRAZENECA-2020SE60204

PATIENT
  Age: 26540 Day
  Sex: Male
  Weight: 100.7 kg

DRUGS (6)
  1. BYETTA [Suspect]
     Active Substance: EXENATIDE
     Indication: TYPE 2 DIABETES MELLITUS
     Dosage: TWO TIMES A DAY
     Route: 065
     Dates: end: 2019
  2. ASPIRIN. [Concomitant]
     Active Substance: ASPIRIN
     Indication: TYPE 2 DIABETES MELLITUS
     Route: 048
     Dates: start: 1989
  3. LEVEMIR [Concomitant]
     Active Substance: INSULIN DETEMIR
     Indication: TYPE 2 DIABETES MELLITUS
     Dosage: 30 UNITS IN THE MORNING AND 52 UNITS IN THE EVENING, START DATE BEFORE BYETTA.
  4. CLOPIDOGREL [Concomitant]
     Active Substance: CLOPIDOGREL BISULFATE
  5. HUMALOG [Concomitant]
     Active Substance: INSULIN LISPRO
     Dosage: INCREASED FROM 20 UNITS THREE TIMES A DAY INJECTIONS TO 30 UNITS 3 TIMES A DAY
     Dates: start: 202004
  6. BYDUREON BCISE [Suspect]
     Active Substance: EXENATIDE
     Indication: TYPE 2 DIABETES MELLITUS
     Route: 065
     Dates: start: 2019

REACTIONS (9)
  - Glycosylated haemoglobin increased [Unknown]
  - Wrong technique in device usage process [Unknown]
  - Weight increased [Unknown]
  - Injection site haemorrhage [Unknown]
  - Device leakage [Unknown]
  - Device issue [Unknown]
  - Product preparation error [Unknown]
  - Incorrect dose administered [Unknown]
  - Intentional device misuse [Unknown]

NARRATIVE: CASE EVENT DATE: 20190806
